FAERS Safety Report 10015817 (Version 1)
Quarter: 2014Q1

REPORT INFORMATION
  Report Type: Spontaneous
  Country: CA (occurrence: CA)
  Receive Date: 20140317
  Receipt Date: 20140317
  Transmission Date: 20141002
  Serious: Yes (Hospitalization, Other)
  Sender: FDA-Public Use
  Company Number: CA-GLAXOSMITHKLINE-A1064934A

PATIENT
  Age: 65 Year
  Sex: Female
  Weight: 68.2 kg

DRUGS (4)
  1. CLINDOXYL GEL [Suspect]
     Indication: PRODUCT USED FOR UNKNOWN INDICATION
  2. BENADRYL [Concomitant]
  3. UNKNOWN [Concomitant]
  4. PREDNISONE [Concomitant]

REACTIONS (4)
  - Blister [Recovered/Resolved]
  - Eye swelling [Unknown]
  - Malaise [Unknown]
  - Swelling face [Unknown]
